FAERS Safety Report 7002137-X (Version None)
Quarter: 2010Q3

REPORT INFORMATION
  Report Type: 
  Country: None (occurrence: None)
  Receive Date: 20100920
  Receipt Date: 20090722
  Transmission Date: 20110219
  Serious: Yes (Other)
  Sender: FDA-Public Use
  Company Number: US-ASTRAZENECA-2007UW05863

PATIENT
  Sex: Female

DRUGS (4)
  1. SEROQUEL [Suspect]
     Route: 048
     Dates: start: 20041122
  2. HYDROXYZINE PAMOATE [Concomitant]
     Dosage: ONE OR TWO CAPSULE EVERY SIX HOURS AS NEEDED
     Dates: start: 20041029
  3. BACLOFEN [Concomitant]
     Dosage: 10 TO 60 MG DAILY
     Dates: start: 20041102
  4. EFFEXOR XR [Concomitant]
     Dates: start: 20041122

REACTIONS (3)
  - DIABETES MELLITUS [None]
  - KETOACIDOSIS [None]
  - PANCREATITIS [None]
